FAERS Safety Report 7087997-9 (Version None)
Quarter: 2010Q4

REPORT INFORMATION
  Report Type: 
  Country: None (occurrence: None)
  Receive Date: 20101001
  Receipt Date: 20100628
  Transmission Date: 20110411
  Serious: No
  Sender: FDA-Public Use
  Company Number: 1000014506

PATIENT
  Age: 71 Year
  Sex: Female

DRUGS (3)
  1. NEBIVOLOL HCL [Suspect]
     Indication: HYPERTENSION
     Dosage: 5 MG (5 MG, 1 IN 1 D), ORAL, 10 MG (5 MG, 2 IN 1 D), ORAL
     Route: 048
     Dates: start: 20081201
  2. ENALAPRIL [Concomitant]
  3. ASPIRIN [Concomitant]

REACTIONS (4)
  - ALOPECIA [None]
  - NASAL MUCOSAL DISORDER [None]
  - PRURITUS [None]
  - PYREXIA [None]
